FAERS Safety Report 11776648 (Version 3)
Quarter: 2015Q4

REPORT INFORMATION
  Report Type: Report from Study
  Country: US (occurrence: US)
  Receive Date: 20151125
  Receipt Date: 20151228
  Transmission Date: 20160304
  Serious: No
  Sender: FDA-Public Use
  Company Number: PHEH2015US024039

PATIENT
  Age: 55 Year
  Sex: Female

DRUGS (1)
  1. COSENTYX [Suspect]
     Active Substance: SECUKINUMAB
     Indication: PSORIASIS
     Dosage: 300 MG, QW
     Route: 058
     Dates: start: 20151110, end: 20151202

REACTIONS (11)
  - Tympanic membrane perforation [Unknown]
  - Injection site pain [Unknown]
  - Upper respiratory tract infection [Not Recovered/Not Resolved]
  - Ear pain [Unknown]
  - Dyspnoea [Unknown]
  - Flushing [Unknown]
  - Throat irritation [Unknown]
  - Nausea [Unknown]
  - Cough [Not Recovered/Not Resolved]
  - Ear infection [Unknown]
  - Throat tightness [Unknown]

NARRATIVE: CASE EVENT DATE: 20151111
